FAERS Safety Report 5533814-5 (Version None)
Quarter: 2007Q4

REPORT INFORMATION
  Report Type: 
  Country: None (occurrence: None)
  Receive Date: 20071204
  Receipt Date: 20071127
  Transmission Date: 20080405
  Serious: Yes (Hospitalization, Other)
  Sender: FDA-Public Use
  Company Number: ES-ABBOTT-07P-144-0426081-00

PATIENT
  Age: 46 Year
  Sex: Female

DRUGS (2)
  1. SIBUTRAMINE HYDROCHLORIDE CAPSULES [Suspect]
     Indication: WEIGHT DECREASED
     Dosage: INCREASING DOSAGES UP TO 14 MG/DAY
  2. SIBUTRAMINE HYDROCHLORIDE CAPSULES [Suspect]

REACTIONS (1)
  - PSYCHOTIC DISORDER [None]
